FAERS Safety Report 16762097 (Version 2)
Quarter: 2019Q3

REPORT INFORMATION
  Report Type: Spontaneous
  Country: US (occurrence: US)
  Receive Date: 20190830
  Receipt Date: 20190917
  Transmission Date: 20191005
  Serious: Yes (Other)
  Sender: FDA-Public Use
  Company Number: US-ELI_LILLY_AND_COMPANY-US201908011106

PATIENT
  Age: 69 Year
  Sex: Male

DRUGS (4)
  1. TRULICITY [Suspect]
     Active Substance: DULAGLUTIDE
     Indication: TYPE 2 DIABETES MELLITUS
     Dosage: 1.5 MG, UNKNOWN
     Route: 058
     Dates: start: 20190522
  2. PRANDIN [REPAGLINIDE] [Concomitant]
     Indication: TYPE 2 DIABETES MELLITUS
  3. TRULICITY [Suspect]
     Active Substance: DULAGLUTIDE
     Dosage: 1.5 MG, UNKNOWN
     Route: 058
  4. METFORMIN [Concomitant]
     Active Substance: METFORMIN HYDROCHLORIDE
     Indication: TYPE 2 DIABETES MELLITUS

REACTIONS (18)
  - Vertigo [Unknown]
  - Vomiting [Recovering/Resolving]
  - Nausea [Recovering/Resolving]
  - Abdominal distension [Unknown]
  - Injection site erythema [Recovering/Resolving]
  - Inappropriate schedule of product administration [Recovering/Resolving]
  - Injection site swelling [Recovering/Resolving]
  - Injection site mass [Recovering/Resolving]
  - Injection site rash [Unknown]
  - Dizziness [Recovering/Resolving]
  - Head injury [Recovering/Resolving]
  - Fall [Recovering/Resolving]
  - Injection site pruritus [Unknown]
  - Limb injury [Recovering/Resolving]
  - Injection site pain [Recovering/Resolving]
  - Balance disorder [Recovering/Resolving]
  - Contusion [Recovering/Resolving]
  - Eructation [Unknown]

NARRATIVE: CASE EVENT DATE: 201908
